FAERS Safety Report 9432181 (Version 1)
Quarter: 2013Q3

REPORT INFORMATION
  Report Type: Spontaneous
  Country: US (occurrence: US)
  Receive Date: 20130731
  Receipt Date: 20130731
  Transmission Date: 20140515
  Serious: No
  Sender: FDA-Public Use
  Company Number: US-TARO-2013P1001772

PATIENT
  Age: 78 Year
  Sex: Female
  Weight: 58.97 kg

DRUGS (1)
  1. DESOXIMETASONE [Suspect]
     Indication: RASH
     Route: 061
     Dates: start: 201301, end: 20130129

REACTIONS (1)
  - Drug ineffective [Recovering/Resolving]
